FAERS Safety Report 24001617 (Version 1)
Quarter: 2024Q2

REPORT INFORMATION
  Report Type: Spontaneous
  Country: FR (occurrence: FR)
  Receive Date: 20240621
  Receipt Date: 20240621
  Transmission Date: 20240716
  Serious: Yes (Hospitalization)
  Sender: FDA-Public Use
  Company Number: FR-ROCHE-3566175

PATIENT
  Age: 57 Year
  Sex: Male
  Weight: 74.5 kg

DRUGS (27)
  1. CYCLOPHOSPHAMIDE [Suspect]
     Active Substance: CYCLOPHOSPHAMIDE
     Indication: Richter^s syndrome
     Dosage: CYCLE 1 DAY 1, AS PER PROTOCOL
     Route: 042
     Dates: start: 20240330
  2. CYCLOPHOSPHAMIDE [Suspect]
     Active Substance: CYCLOPHOSPHAMIDE
     Dosage: CYCLE 1 DAY 5
     Route: 042
     Dates: start: 20240503
  3. DOXORUBICIN [Suspect]
     Active Substance: DOXORUBICIN
     Dosage: C1D5
     Route: 042
     Dates: start: 20240403
  4. DOXORUBICIN [Suspect]
     Active Substance: DOXORUBICIN
     Indication: Richter^s syndrome
     Dosage: C2D5
     Route: 042
     Dates: start: 20240422
  5. GLOFITAMAB [Suspect]
     Active Substance: GLOFITAMAB
     Indication: Richter^s syndrome
     Dosage: C1D5
     Route: 042
     Dates: start: 20240403
  6. GLOFITAMAB [Suspect]
     Active Substance: GLOFITAMAB
     Dosage: C2D5
     Route: 042
     Dates: start: 20240426
  7. OBINUTUZUMAB [Suspect]
     Active Substance: OBINUTUZUMAB
     Dosage: 125 MG
     Route: 065
     Dates: start: 20240330
  8. OBINUTUZUMAB [Suspect]
     Active Substance: OBINUTUZUMAB
     Dosage: 8 MG
     Route: 065
     Dates: start: 20240330
  9. OBINUTUZUMAB [Suspect]
     Active Substance: OBINUTUZUMAB
     Dosage: 80 MG
     Route: 065
     Dates: start: 20240330
  10. OBINUTUZUMAB [Suspect]
     Active Substance: OBINUTUZUMAB
     Indication: Richter^s syndrome
     Dosage: 800 MG
     Route: 065
     Dates: start: 20240330
  11. PREDNISONE [Suspect]
     Active Substance: PREDNISONE
     Dosage: 60 MG/M2
     Route: 048
     Dates: start: 20240330
  12. PREDNISONE [Suspect]
     Active Substance: PREDNISONE
     Dosage: C1D5
     Route: 048
     Dates: start: 20240403
  13. PREDNISONE [Suspect]
     Active Substance: PREDNISONE
     Indication: Richter^s syndrome
     Dosage: C2D5
     Route: 048
     Dates: start: 20240422
  14. PREDNISONE [Suspect]
     Active Substance: PREDNISONE
     Dosage: C2D5
     Route: 048
     Dates: start: 20240426
  15. RITUXIMAB [Suspect]
     Active Substance: RITUXIMAB
     Dosage: 2.5 MG
     Route: 042
     Dates: start: 20240330
  16. RITUXIMAB [Suspect]
     Active Substance: RITUXIMAB
     Indication: Richter^s syndrome
     Dosage: C2D28
     Route: 042
     Dates: start: 20240504
  17. VINCRISTINE [Suspect]
     Active Substance: VINCRISTINE
     Dosage: C1D1
     Route: 042
     Dates: start: 20240330
  18. VINCRISTINE [Suspect]
     Active Substance: VINCRISTINE
     Indication: Richter^s syndrome
     Dosage: C2D5
     Route: 042
     Dates: start: 20240426
  19. BACTRIM [Concomitant]
     Active Substance: SULFAMETHOXAZOLE\TRIMETHOPRIM
     Indication: Product used for unknown indication
     Dosage: 500 MG
     Route: 065
     Dates: start: 20240330
  20. BACTRIM [Concomitant]
     Active Substance: SULFAMETHOXAZOLE\TRIMETHOPRIM
     Dosage: C1D1
     Route: 042
     Dates: start: 20240330
  21. SODIUM BICARBONATE [Concomitant]
     Active Substance: SODIUM BICARBONATE
     Dosage: C1D1
     Route: 042
     Dates: start: 20240330
  22. SODIUM BICARBONATE [Concomitant]
     Active Substance: SODIUM BICARBONATE
     Indication: Product used for unknown indication
     Dosage: C2D5
     Route: 042
     Dates: start: 20240422
  23. EMEND [Concomitant]
     Active Substance: APREPITANT
     Indication: Product used for unknown indication
     Dosage: C2 D5
     Route: 042
     Dates: start: 20240426
  24. SOTALOL [Concomitant]
     Active Substance: SOTALOL
     Dosage: C1 D5
     Route: 042
     Dates: start: 20240403
  25. SOTALOL [Concomitant]
     Active Substance: SOTALOL
     Indication: Product used for unknown indication
     Dosage: C2 D5
     Route: 042
     Dates: start: 20240422
  26. VALACYCLOVIR HYDROCHLORIDE [Concomitant]
     Active Substance: VALACYCLOVIR HYDROCHLORIDE
     Indication: Product used for unknown indication
     Route: 065
  27. ONDANSETRON [Concomitant]
     Active Substance: ONDANSETRON
     Indication: Product used for unknown indication
     Dosage: SINGLE DOSE C2D1
     Route: 042
     Dates: start: 20240422

REACTIONS (1)
  - Cytokine release syndrome [Not Recovered/Not Resolved]

NARRATIVE: CASE EVENT DATE: 20240504
